FAERS Safety Report 9659645 (Version 3)
Quarter: 2013Q4

REPORT INFORMATION
  Report Type: Report from Study
  Country: US (occurrence: US)
  Receive Date: 20131031
  Receipt Date: 20131129
  Transmission Date: 20140711
  Serious: Yes (Hospitalization)
  Sender: FDA-Public Use
  Company Number: US-JNJFOC-20131015601

PATIENT
  Age: 17 Year
  Sex: Female
  Weight: 56.2 kg

DRUGS (5)
  1. REMICADE [Suspect]
     Indication: INFLAMMATORY BOWEL DISEASE
     Route: 042
     Dates: start: 20110317
  2. HUMIRA [Concomitant]
     Route: 065
  3. MIRALAX [Concomitant]
     Route: 065
  4. LANSOPRAZOLE [Concomitant]
     Route: 065
  5. 5-AMINOSALICYLIC ACID [Concomitant]
     Route: 048

REACTIONS (1)
  - Abdominal pain [Recovered/Resolved]
